FAERS Safety Report 25171016 (Version 1)
Quarter: 2025Q2

REPORT INFORMATION
  Report Type: Spontaneous
  Country: CA (occurrence: CA)
  Receive Date: 20250408
  Receipt Date: 20250408
  Transmission Date: 20250717
  Serious: Yes (Other)
  Sender: LEGACY PHARMACEUTICAL PACKAGING
  Company Number: CA-LEGACY PHARMA INC. SEZC-LGP202503-000075

PATIENT

DRUGS (2)
  1. AZATHIOPRINE [Suspect]
     Active Substance: AZATHIOPRINE
     Indication: Product used for unknown indication
  2. VEDOLIZUMAB [Suspect]
     Active Substance: VEDOLIZUMAB
     Indication: Product used for unknown indication
     Route: 065
     Dates: start: 2015

REACTIONS (2)
  - Abdominal abscess [Unknown]
  - Herpes zoster [Unknown]
